FAERS Safety Report 10963074 (Version 2)
Quarter: 2015Q2

REPORT INFORMATION
  Report Type: Spontaneous
  Country: US (occurrence: US)
  Receive Date: 20150327
  Receipt Date: 20150527
  Transmission Date: 20150821
  Serious: No
  Sender: FDA-Public Use
  Company Number: US-ASTRAZENECA-2015SE24933

PATIENT
  Age: 20606 Day
  Sex: Female
  Weight: 90.7 kg

DRUGS (3)
  1. SYMBICORT [Suspect]
     Active Substance: BUDESONIDE\FORMOTEROL FUMARATE DIHYDRATE
     Indication: ALPHA-1 ANTI-TRYPSIN DEFICIENCY
     Dosage: DOSE:160 MCG / 4.5 MCG 2 PUFFS, FREQUENCY: TWO TIMES A DAY
     Route: 055
     Dates: start: 20150316
  2. SYMBICORT [Suspect]
     Active Substance: BUDESONIDE\FORMOTEROL FUMARATE DIHYDRATE
     Indication: ASTHMA
     Dosage: DOSE:160 MCG / 4.5 MCG 2 PUFFS, FREQUENCY: TWO TIMES A DAY
     Route: 055
     Dates: start: 20150316
  3. SYMBICORT [Suspect]
     Active Substance: BUDESONIDE\FORMOTEROL FUMARATE DIHYDRATE
     Indication: CHRONIC OBSTRUCTIVE PULMONARY DISEASE
     Dosage: DOSE:160 MCG / 4.5 MCG 2 PUFFS, FREQUENCY: TWO TIMES A DAY
     Route: 055
     Dates: start: 20150316

REACTIONS (2)
  - Dysgeusia [Unknown]
  - Underdose [Not Recovered/Not Resolved]

NARRATIVE: CASE EVENT DATE: 20150316
